FAERS Safety Report 5079296-1 (Version None)
Quarter: 2006Q3

REPORT INFORMATION
  Report Type: 
  Country: None (occurrence: None)
  Receive Date: 20060808
  Receipt Date: 20060724
  Transmission Date: 20061208
  Serious: Yes (Hospitalization)
  Sender: FDA-Public Use
  Company Number: 2006VX000881

PATIENT
  Age: 69 Year
  Sex: Male

DRUGS (6)
  1. PERMAX [Suspect]
     Indication: PARKINSON'S DISEASE
  2. CARBIDOPA [Suspect]
     Indication: PARKINSON'S DISEASE
  3. LEVODOPA [Suspect]
     Indication: PARKINSON'S DISEASE
  4. OLANZAPINE [Suspect]
     Indication: PSYCHOTIC DISORDER
  5. ZIPRASIDONE HCL [Suspect]
     Indication: PSYCHOTIC DISORDER
  6. QUETIAPINE FUMARATE [Suspect]
     Indication: PSYCHOTIC DISORDER
     Dosage: SEE IMAGE

REACTIONS (26)
  - ABASIA [None]
  - ACTIVITIES OF DAILY LIVING IMPAIRED [None]
  - AGGRESSION [None]
  - AGITATION [None]
  - COGNITIVE DISORDER [None]
  - CONDITION AGGRAVATED [None]
  - CYCLOTHYMIC DISORDER [None]
  - DELUSION [None]
  - DEMENTIA [None]
  - DRUG INTOLERANCE [None]
  - FLAT AFFECT [None]
  - GAIT DISTURBANCE [None]
  - GENERAL PHYSICAL HEALTH DETERIORATION [None]
  - HALLUCINATION, VISUAL [None]
  - JUDGEMENT IMPAIRED [None]
  - MEMORY IMPAIRMENT [None]
  - MOBILITY DECREASED [None]
  - ORAL INTAKE REDUCED [None]
  - ORTHOSTATIC HYPOTENSION [None]
  - PARANOIA [None]
  - PSYCHOTIC DISORDER [None]
  - SPEECH DISORDER [None]
  - STARING [None]
  - THERAPEUTIC RESPONSE DECREASED [None]
  - TREMOR [None]
  - URINARY TRACT INFECTION [None]
